FAERS Safety Report 7626773-2 (Version None)
Quarter: 2011Q3

REPORT INFORMATION
  Report Type: 
  Country: None (occurrence: None)
  Receive Date: 20110713
  Receipt Date: 20110628
  Transmission Date: 20111222
  Serious: Yes (Hospitalization)
  Sender: FDA-Public Use
  Company Number: MTX-11-03

PATIENT
  Sex: Female

DRUGS (1)
  1. METHOTREXATE [Suspect]

REACTIONS (14)
  - PREMATURE BABY [None]
  - VENTRICULAR SEPTAL DEFECT [None]
  - RESPIRATORY SYNCYTIAL VIRUS INFECTION [None]
  - NEONATAL HYPOXIA [None]
  - MATERNAL DRUGS AFFECTING FOETUS [None]
  - RESPIRATORY TRACT INFECTION [None]
  - CONGENITAL PULMONARY VALVE ATRESIA [None]
  - CONGENITAL HYDRONEPHROSIS [None]
  - CONGENITAL CYSTIC KIDNEY DISEASE [None]
  - EXTERNAL AUDITORY CANAL ATRESIA [None]
  - MICROGNATHIA [None]
  - RENAL DYSPLASIA [None]
  - CONGENITAL ARTERIAL MALFORMATION [None]
  - INTESTINAL MALROTATION [None]
